FAERS Safety Report 14715549 (Version 1)
Quarter: 2018Q2

REPORT INFORMATION
  Report Type: Spontaneous
  Country: DE (occurrence: DE)
  Receive Date: 20180404
  Receipt Date: 20180404
  Transmission Date: 20180711
  Serious: Yes (Other)
  Sender: FDA-Public Use
  Company Number: DE-MYLANLABS-2018M1020413

PATIENT
  Age: 37 Year
  Sex: Female

DRUGS (2)
  1. SERTRALINE [Suspect]
     Active Substance: SERTRALINE HYDROCHLORIDE
     Indication: PSYCHOTIC DISORDER
     Dosage: 100 MG, QD (DAILY DOSE: 100 MG MILLIGRAM(S) EVERY DAY)
     Route: 048
  2. QUETIAPINE. [Suspect]
     Active Substance: QUETIAPINE
     Indication: PSYCHOTIC DISORDER
     Dosage: 800 MG, QD (DAILY DOSE: 800 MG MILLIGRAM(S) EVERY DAY)
     Route: 048

REACTIONS (2)
  - Exposure during pregnancy [Unknown]
  - Labour complication [Unknown]
